FAERS Safety Report 12229076 (Version 1)
Quarter: 2016Q2

REPORT INFORMATION
  Report Type: Spontaneous
  Country: US (occurrence: US)
  Receive Date: 20160401
  Receipt Date: 20160401
  Transmission Date: 20160815
  Serious: Yes (Hospitalization, Other)
  Sender: FDA-Public Use
  Company Number: US-ROCHE-1727399

PATIENT
  Age: 54 Year
  Sex: Female
  Weight: 30.06 kg

DRUGS (2)
  1. ACTIVASE [Suspect]
     Active Substance: ALTEPLASE
     Route: 040
     Dates: start: 20160314, end: 20160314
  2. ACTIVASE [Suspect]
     Active Substance: ALTEPLASE
     Indication: ISCHAEMIC STROKE
     Route: 040

REACTIONS (5)
  - Dysphagia [Recovered/Resolved]
  - Swollen tongue [Unknown]
  - Speech disorder [Recovered/Resolved]
  - Angioedema [Recovered/Resolved]
  - Lip swelling [Unknown]

NARRATIVE: CASE EVENT DATE: 20160314
